FAERS Safety Report 14496927 (Version 2)
Quarter: 2018Q2

REPORT INFORMATION
  Report Type: Spontaneous
  Country: US (occurrence: US)
  Receive Date: 20180207
  Receipt Date: 20180620
  Transmission Date: 20180711
  Serious: No
  Sender: FDA-Public Use
  Company Number: US-PFIZER INC-2018050292

PATIENT
  Age: 27 Year
  Sex: Female

DRUGS (1)
  1. MINOXIDIL. [Suspect]
     Active Substance: MINOXIDIL
     Indication: ALOPECIA UNIVERSALIS
     Dosage: UNK, 2X/DAY
     Route: 061
     Dates: start: 2014, end: 2017

REACTIONS (1)
  - Drug ineffective for unapproved indication [Unknown]
